FAERS Safety Report 8142759-6 (Version None)
Quarter: 2012Q1

REPORT INFORMATION
  Report Type: 
  Country: None (occurrence: None)
  Receive Date: 20120216
  Receipt Date: 20120210
  Transmission Date: 20120608
  Serious: Yes (Hospitalization, Other)
  Sender: FDA-Public Use
  Company Number: JP-ROCHE-782019

PATIENT
  Age: 51 Year
  Sex: Male
  Weight: 67 kg

DRUGS (43)
  1. MYCOPHENOLATE MOFETIL (CELLCEPT) [Suspect]
     Route: 048
     Dates: start: 20080619, end: 20080821
  2. ASPIRIN [Concomitant]
     Dosage: PERORAL AGENT. NOTE: 818100MG
     Route: 048
  3. MYCOPHENOLATE MOFETIL (CELLCEPT) [Suspect]
     Route: 048
     Dates: start: 20060619, end: 20060619
  4. VALCYTE [Suspect]
     Dosage: PERORAL AGENT
     Route: 048
  5. CANDESARTAN CILEXETIL [Concomitant]
     Dosage: PERORAL AGENT
     Route: 048
  6. LIPITOR [Concomitant]
     Dosage: INFUSION RATE DECREASED
     Route: 048
  7. MAGNESIUM SULFATE [Concomitant]
     Dosage: PERORAL AGENT
     Route: 048
  8. MYCOPHENOLATE MOFETIL (CELLCEPT) [Suspect]
     Indication: PROPHYLAXIS AGAINST TRANSPLANT REJECTION
     Route: 048
     Dates: start: 20060618, end: 20060618
  9. MYCOPHENOLATE MOFETIL (CELLCEPT) [Suspect]
     Route: 048
     Dates: start: 20080822, end: 20081106
  10. MYCOPHENOLATE MOFETIL (CELLCEPT) [Suspect]
     Route: 048
     Dates: start: 20081125, end: 20090204
  11. MYCOPHENOLATE MOFETIL (CELLCEPT) [Suspect]
     Route: 048
     Dates: start: 20090401, end: 20090714
  12. VALCYTE [Suspect]
     Route: 048
  13. FERROUS SULFATE [Suspect]
     Indication: PROPHYLAXIS AGAINST TRANSPLANT REJECTION
     Route: 048
     Dates: start: 20061006, end: 20090713
  14. ZOLPIDEM [Concomitant]
     Dosage: NOTE: 5510MG
     Route: 048
  15. MYCOPHENOLATE MOFETIL (CELLCEPT) [Suspect]
     Route: 048
     Dates: start: 20060620, end: 20060624
  16. MYCOPHENOLATE MOFETIL (CELLCEPT) [Suspect]
     Route: 048
     Dates: start: 20090724, end: 20090730
  17. CYCLOSPORINE [Suspect]
     Dosage: NOTE: 2202 380MG. PERORAL AGENT
     Route: 048
     Dates: start: 20060619, end: 20080318
  18. SODIUM FERROUS CITRATE [Suspect]
     Indication: PROPHYLAXIS AGAINST TRANSPLANT REJECTION
     Route: 048
  19. VALCYTE [Suspect]
     Route: 048
  20. OMEPRAZOLE [Concomitant]
     Dosage: INFUSION RATE DECREASED
     Route: 048
  21. PRAVASTATIN [Concomitant]
     Dosage: PERORAL AGENT. PRAVASTAN
     Route: 048
  22. MYCOPHENOLATE MOFETIL (CELLCEPT) [Suspect]
     Route: 048
     Dates: start: 20081117, end: 20081119
  23. SOLU-MEDROL [Concomitant]
     Dosage: NOTE: 707375MG
     Route: 042
     Dates: start: 20060617, end: 20060623
  24. SPIRONOLACTONE [Concomitant]
     Route: 048
  25. AMIODARONE HYDROCHLORIDE [Concomitant]
     Route: 048
  26. HALCION [Concomitant]
     Dosage: NOTE: 0.37500.75MG. PERORAL AGENT
     Route: 048
  27. MYCOPHENOLATE MOFETIL (CELLCEPT) [Suspect]
     Route: 048
     Dates: start: 20060625, end: 20060626
  28. MYCOPHENOLATE MOFETIL (CELLCEPT) [Suspect]
     Route: 048
     Dates: start: 20060628, end: 20060702
  29. MYCOPHENOLATE MOFETIL (CELLCEPT) [Suspect]
     Route: 048
     Dates: start: 20090205, end: 20090401
  30. VALCYTE [Suspect]
     Indication: PROPHYLAXIS AGAINST TRANSPLANT REJECTION
     Dosage: PERORAL AGENT
     Route: 048
     Dates: start: 20060617, end: 20070618
  31. NORVASC [Concomitant]
     Dosage: PERORAL AGENT
     Route: 048
  32. LASIX [Concomitant]
     Dosage: PERORAL AGENT
     Route: 048
  33. MYCOPHENOLATE MOFETIL (CELLCEPT) [Suspect]
     Route: 048
     Dates: start: 20060704, end: 20080618
  34. MYCOPHENOLATE MOFETIL (CELLCEPT) [Suspect]
     Route: 048
     Dates: start: 20081120, end: 20081124
  35. LOSARTAN POTASSIUM [Concomitant]
     Route: 048
  36. WARFARIN SODIUM [Concomitant]
     Dosage: NOTE: 1.514.5MG. PERORA AGENT
     Route: 048
  37. SULFAMETHOXAZOLE AND TRIMETHOPRIM [Concomitant]
     Dosage: PERORAL AGENT
     Route: 048
  38. MYCOPHENOLATE MOFETIL (CELLCEPT) [Suspect]
     Route: 048
     Dates: start: 20060703, end: 20060703
  39. MYCOPHENOLATE MOFETIL (CELLCEPT) [Suspect]
     Route: 048
     Dates: start: 20090715, end: 20090723
  40. CYCLOSPORINE [Suspect]
     Indication: PROPHYLAXIS AGAINST TRANSPLANT REJECTION
     Route: 042
     Dates: start: 20060618, end: 20060619
  41. PREDNISOLONE AND PREDNISOLONE ACETATE AND PREDNISOLONE SODIUM SUCCINAT [Suspect]
     Indication: PROPHYLAXIS AGAINST TRANSPLANT REJECTION
     Dosage: PERORAL AGENT. NOTE: 0030MG
     Route: 048
     Dates: start: 20060624, end: 20080611
  42. PREDNISOLONE AND PREDNISOLONE ACETATE AND PREDNISOLONE SODIUM SUCCINAT [Suspect]
     Dosage: NOTE: 2.5210MG. PERORAL AGENT
     Route: 048
  43. TACROLIMUS [Suspect]
     Indication: PROPHYLAXIS AGAINST TRANSPLANT REJECTION
     Dosage: NOTE: 338.2MG; INFUSION RATE DECREASED
     Route: 048

REACTIONS (13)
  - DIARRHOEA [None]
  - BLOOD CORTISOL DECREASED [None]
  - LYMPHORRHOEA [None]
  - HAEMOGLOBIN DECREASED [None]
  - ABNORMAL BEHAVIOUR [None]
  - PANCYTOPENIA [None]
  - NEUTROPHIL COUNT DECREASED [None]
  - DERMATITIS CONTACT [None]
  - BLOOD IMMUNOGLOBULIN G DECREASED [None]
  - VOMITING [None]
  - HYPERLIPIDAEMIA [None]
  - WHITE BLOOD CELL COUNT DECREASED [None]
  - DECREASED APPETITE [None]
